FAERS Safety Report 18260462 (Version 1)
Quarter: 2020Q3

REPORT INFORMATION
  Report Type: Spontaneous
  Country: FR (occurrence: FR)
  Receive Date: 20200914
  Receipt Date: 20200914
  Transmission Date: 20201103
  Serious: Yes (Hospitalization)
  Sender: FDA-Public Use
  Company Number: FR-TEVA-2020-FR-1825505

PATIENT
  Age: 56 Year
  Sex: Male
  Weight: 84 kg

DRUGS (6)
  1. CISPLATINE ACCORD 1 MG/ML, SOLUTION A DILUER POUR PERFUSION [Suspect]
     Active Substance: CISPLATIN
     Indication: BRONCHIAL CARCINOMA
     Dosage: 75 MG/M2
     Route: 042
     Dates: start: 20160713, end: 20160901
  2. VINORELBINE (TARTRATE DE) [Concomitant]
     Active Substance: VINORELBINE TARTRATE
  3. NEBIVOLOL. [Concomitant]
     Active Substance: NEBIVOLOL
  4. ARIXTRA [Concomitant]
     Active Substance: FONDAPARINUX SODIUM
  5. ALPRAZOLAM. [Concomitant]
     Active Substance: ALPRAZOLAM
  6. VALSARTAN. [Suspect]
     Active Substance: VALSARTAN
     Indication: HYPERTENSION
     Dosage: 80 MILLIGRAM
     Route: 048
     Dates: end: 20160910

REACTIONS (1)
  - Chronic kidney disease [Recovering/Resolving]

NARRATIVE: CASE EVENT DATE: 20160906
